FAERS Safety Report 7715061-1 (Version None)
Quarter: 2011Q3

REPORT INFORMATION
  Report Type: 
  Country: None (occurrence: None)
  Receive Date: 20110829
  Receipt Date: 20110819
  Transmission Date: 20111222
  Serious: Yes (Hospitalization)
  Sender: FDA-Public Use
  Company Number: PL-NAPPMUNDI-DEU-2011-0007709

PATIENT
  Sex: Male
  Weight: 63 kg

DRUGS (1)
  1. OXYCONTIN PR TABLETS [Suspect]
     Indication: CANCER PAIN
     Dosage: 10 MG, BID
     Route: 048
     Dates: start: 20110204, end: 20110206

REACTIONS (3)
  - HEADACHE [None]
  - VOMITING [None]
  - ALTERED STATE OF CONSCIOUSNESS [None]
